FAERS Safety Report 8530884-7 (Version None)
Quarter: 2012Q3

REPORT INFORMATION
  Report Type: 
  Country: None (occurrence: None)
  Receive Date: 20120723
  Receipt Date: 20120716
  Transmission Date: 20120928
  Serious: Yes (Other)
  Sender: FDA-Public Use
  Company Number: US-ROCHE-1088022

PATIENT
  Sex: Female
  Weight: 94.432 kg

DRUGS (4)
  1. RITUXAN [Suspect]
     Indication: PRODUCT USED FOR UNKNOWN INDICATION
     Route: 042
     Dates: start: 20120712, end: 20120712
  2. PREDNISOLONE [Concomitant]
  3. SODIUM CHLORIDE [Concomitant]
  4. BENADRYL [Concomitant]

REACTIONS (7)
  - BLOOD PRESSURE DECREASED [None]
  - DIZZINESS [None]
  - ILL-DEFINED DISORDER [None]
  - DYSPNOEA [None]
  - ABDOMINAL DISCOMFORT [None]
  - DYSSTASIA [None]
  - ASTHENIA [None]
